FAERS Safety Report 20545448 (Version 1)
Quarter: 2022Q1

REPORT INFORMATION
  Report Type: Spontaneous
  Country: None (occurrence: KR)
  Receive Date: 20220303
  Receipt Date: 20220303
  Transmission Date: 20220424
  Serious: Yes (Disabling)
  Sender: FDA-Public Use
  Company Number: KR-MLV Pharma LLC-2126412

PATIENT
  Age: 28 Year
  Sex: Male

DRUGS (2)
  1. BETAMETHASONE DIPROPIONATE [Suspect]
     Active Substance: BETAMETHASONE DIPROPIONATE
     Indication: Herpes simplex
     Route: 065
  2. TENOFOVIR [Suspect]
     Active Substance: TENOFOVIR
     Route: 065

REACTIONS (1)
  - Familial periodic paralysis [Recovered/Resolved]
